FAERS Safety Report 14072771 (Version 2)
Quarter: 2017Q4

REPORT INFORMATION
  Report Type: Other
  Country: CA (occurrence: CA)
  Receive Date: 20171011
  Receipt Date: 20171116
  Transmission Date: 20180321
  Serious: Yes (Other)
  Sender: FDA-Public Use
  Company Number: CA-APOTEX-2017AP019374

PATIENT
  Sex: Female

DRUGS (1)
  1. APO-SALVENT [Suspect]
     Active Substance: ALBUTEROL
     Indication: PRODUCT USED FOR UNKNOWN INDICATION
     Dosage: UNK, QID
     Route: 065

REACTIONS (2)
  - Product quality issue [Unknown]
  - Choking [Unknown]
